FAERS Safety Report 23595405 (Version 3)
Quarter: 2024Q2

REPORT INFORMATION
  Report Type: Spontaneous
  Country: JP (occurrence: JP)
  Receive Date: 20240305
  Receipt Date: 20240416
  Transmission Date: 20240716
  Serious: Yes (Other)
  Sender: FDA-Public Use
  Company Number: JP-Accord-409980

PATIENT
  Age: 60 Year
  Sex: Male
  Weight: 79 kg

DRUGS (5)
  1. CARBOPLATIN [Suspect]
     Active Substance: CARBOPLATIN
     Indication: Non-small cell lung cancer recurrent
     Dosage: 670 MG/BODY (AUC 6), DILUTED INTO 250 ML OF SALINE SOLUTION
     Route: 042
     Dates: start: 20201112, end: 202012
  2. PACLITAXEL [Suspect]
     Active Substance: PACLITAXEL
     Indication: Non-small cell lung cancer recurrent
     Dosage: 195 MG/BODY (100 MG/M2), WAS DISSOLVED IN SALINE SOLUTION.
     Route: 042
     Dates: end: 202012
  3. SALINE [Concomitant]
     Active Substance: SODIUM CHLORIDE
  4. PACLITAXEL [Suspect]
     Active Substance: PACLITAXEL
     Indication: Non-small cell lung cancer recurrent
     Dosage: 195 MG/BODY (100 MG/M2), WAS DISSOLVED IN SALINE SOLUTION
     Route: 042
     Dates: start: 20201112, end: 202012
  5. CARBOPLATIN [Suspect]
     Active Substance: CARBOPLATIN
     Indication: Non-small cell lung cancer recurrent
     Dosage: 670 MG/BODY (AUC 6), DILUTED INTO 250 ML OF SALINE SOLUTION
     Route: 042
     Dates: end: 202012

REACTIONS (7)
  - Fatigue [Recovered/Resolved]
  - Decreased appetite [Recovered/Resolved]
  - Dyspnoea exertional [Recovered/Resolved]
  - Neutropenia [Recovered/Resolved]
  - Diarrhoea [Recovered/Resolved]
  - Pyrexia [Recovered/Resolved]
  - Gastroenteritis viral [Recovering/Resolving]

NARRATIVE: CASE EVENT DATE: 20201204
